FAERS Safety Report 9401020 (Version 3)
Quarter: 2013Q3

REPORT INFORMATION
  Report Type: Spontaneous
  Country: JP (occurrence: JP)
  Receive Date: 20130715
  Receipt Date: 20130923
  Transmission Date: 20140515
  Serious: Yes (Hospitalization)
  Sender: FDA-Public Use
  Company Number: JP-GLAXOSMITHKLINE-B0906544A

PATIENT
  Age: 62 Year
  Sex: Male

DRUGS (4)
  1. LAMICTAL [Suspect]
     Indication: PARTIAL SEIZURES
     Route: 048
     Dates: start: 2012, end: 2013
  2. LAMICTAL [Suspect]
     Indication: PARTIAL SEIZURES
     Route: 048
     Dates: start: 201306, end: 2013
  3. LAMICTAL [Suspect]
     Indication: PARTIAL SEIZURES
     Dosage: 200MG PER DAY
     Route: 048
     Dates: start: 2013, end: 20130705
  4. LEVOTOMIN [Concomitant]
     Indication: SCHIZOPHRENIA
     Route: 048

REACTIONS (3)
  - Ileus [Recovered/Resolved]
  - Pneumonia aspiration [Recovered/Resolved]
  - Rash [Recovered/Resolved]
